FAERS Safety Report 10206542 (Version 1)
Quarter: 2014Q2

REPORT INFORMATION
  Report Type: Spontaneous
  Country: US (occurrence: None)
  Receive Date: 20140527
  Receipt Date: 20140527
  Transmission Date: 20141212
  Serious: No
  Sender: FDA-Public Use
  Company Number: None

PATIENT
  Age: 79 Year
  Sex: Female
  Weight: 71.67 kg

DRUGS (1)
  1. LEVOTHYROXINE [Suspect]
     Indication: AUTOIMMUNE THYROIDITIS
     Route: 048
     Dates: start: 20140509, end: 20140511

REACTIONS (4)
  - Palpitations [None]
  - Hypertension [None]
  - Diarrhoea [None]
  - Product substitution issue [None]
